FAERS Safety Report 5699220-8 (Version None)
Quarter: 2008Q2

REPORT INFORMATION
  Report Type: 
  Country: None (occurrence: None)
  Receive Date: 20080408
  Receipt Date: 20080326
  Transmission Date: 20081010
  Serious: Yes (Other)
  Sender: FDA-Public Use
  Company Number: APP200800227

PATIENT
  Age: 73 Year
  Sex: Male
  Weight: 67 kg

DRUGS (2)
  1. HEPARIN SODIUM INJECTION [Suspect]
     Indication: ANTICOAGULANT THERAPY
     Dosage: 70 MG/KG, INTRAVENOUS BOLUS
     Route: 040
     Dates: start: 20080326, end: 20080326
  2. HEPARIN SODIUM [Suspect]

REACTIONS (1)
  - BLOOD PRESSURE DECREASED [None]
